FAERS Safety Report 24298054 (Version 1)
Quarter: 2024Q3

REPORT INFORMATION
  Report Type: Spontaneous
  Country: CN (occurrence: CN)
  Receive Date: 20240909
  Receipt Date: 20240909
  Transmission Date: 20241016
  Serious: Yes (Hospitalization, Other)
  Sender: PFIZER
  Company Number: CN-PFIZER INC-PV202400116789

PATIENT
  Age: 86 Year
  Sex: Male
  Weight: 65 kg

DRUGS (1)
  1. NIRMATRELVIR\RITONAVIR [Suspect]
     Active Substance: NIRMATRELVIR\RITONAVIR
     Indication: COVID-19 treatment
     Dosage: [NIRMATRELVIR 300 MG]/[RITONAVIR 100 MG]; 2X/DAY
     Route: 048
     Dates: start: 20240822, end: 20240824

REACTIONS (2)
  - Drug eruption [Recovering/Resolving]
  - Off label use [Unknown]

NARRATIVE: CASE EVENT DATE: 20240822
